FAERS Safety Report 7446879-0 (Version None)
Quarter: 2011Q2

REPORT INFORMATION
  Report Type: 
  Country: None (occurrence: None)
  Receive Date: 20110429
  Receipt Date: 20110420
  Transmission Date: 20111010
  Serious: Yes (Hospitalization)
  Sender: FDA-Public Use
  Company Number: US-US-EMD SERONO, INC.-7055485

PATIENT
  Sex: Female
  Weight: 100 kg

DRUGS (4)
  1. REBIF [Suspect]
     Indication: MULTIPLE SCLEROSIS
     Route: 058
     Dates: start: 20090429, end: 20110301
  2. REBIF [Suspect]
     Route: 058
     Dates: start: 20110328
  3. NEURONTIN [Concomitant]
     Indication: MULTIPLE SCLEROSIS
  4. AMANTADINE HCL [Concomitant]
     Indication: MULTIPLE SCLEROSIS

REACTIONS (2)
  - KIDNEY INFECTION [None]
  - CYSTITIS [None]
